FAERS Safety Report 8781318 (Version 1)
Quarter: 2012Q4

REPORT INFORMATION
  Report Type: 
  Country: US (occurrence: US)
  Receive Date: 20120913
  Receipt Date: 20120913
  Transmission Date: 20130627
  Serious: No
  Sender: FDA-Public Use
  Company Number: US-VERTEX PHARMACEUTICAL INC.-AE-2012-007931

PATIENT
  Age: 41 None
  Sex: Female
  Weight: 81.82 kg

DRUGS (10)
  1. INCIVEK [Suspect]
     Indication: HEPATITIS C
     Route: 048
     Dates: start: 20120523
  2. RIBAVIRIN [Concomitant]
     Indication: HEPATITIS C
     Route: 048
     Dates: start: 20120523
  3. PEGINTRON [Concomitant]
     Indication: HEPATITIS C
     Route: 058
     Dates: start: 20120523
  4. PROZAC [Concomitant]
     Indication: DEPRESSION
  5. SYNTHROID [Concomitant]
  6. METOPROLOL [Concomitant]
     Indication: BLOOD PRESSURE
     Route: 048
  7. FLEXERIL [Concomitant]
     Indication: MUSCLE RELAXANT THERAPY
  8. LORTAB [Concomitant]
     Indication: INTERVERTEBRAL DISC DEGENERATION
  9. MVI [Concomitant]
  10. PHENERGAN [Concomitant]

REACTIONS (10)
  - Dyspnoea [Unknown]
  - Influenza like illness [Unknown]
  - Sinusitis [Unknown]
  - Body temperature increased [Unknown]
  - Lymphadenopathy [Not Recovered/Not Resolved]
  - Cold sweat [Unknown]
  - Depressed mood [Not Recovered/Not Resolved]
  - Irritability [Recovered/Resolved]
  - Fatigue [Recovered/Resolved]
  - Nausea [Not Recovered/Not Resolved]
